FAERS Safety Report 12853204 (Version 1)
Quarter: 2016Q4

REPORT INFORMATION
  Report Type: Spontaneous
  Country: US (occurrence: US)
  Receive Date: 20161016
  Receipt Date: 20161016
  Transmission Date: 20170207
  Serious: Yes (Other)
  Sender: FDA-Public Use
  Company Number: None

PATIENT
  Age: 84 Year
  Sex: Female
  Weight: 70.31 kg

DRUGS (2)
  1. TRICLOSAN. [Suspect]
     Active Substance: TRICLOSAN
     Indication: DENTAL CARE
     Dosage: 30% PER 6.0.OZ 6.0OZ TUBE TWICE DAILY BRUSHING TEETH INSIDE MOUTH
     Dates: start: 20160525, end: 20160608
  2. NATURAL OTC MEDICATIONS [Concomitant]

REACTIONS (3)
  - Tongue discomfort [None]
  - Product formulation issue [None]
  - Tongue discolouration [None]

NARRATIVE: CASE EVENT DATE: 20160601
